FAERS Safety Report 5009596-2 (Version None)
Quarter: 2006Q2

REPORT INFORMATION
  Report Type: 
  Country: None (occurrence: None)
  Receive Date: 20060524
  Receipt Date: 20060501
  Transmission Date: 20061013
  Serious: Yes (Life-Threatening, Hospitalization)
  Sender: FDA-Public Use
  Company Number: 2006UW07934

PATIENT
  Age: 80 Year
  Sex: Male

DRUGS (4)
  1. TOPROL-XL [Suspect]
     Indication: ARRHYTHMIA
     Route: 048
  2. AVELOX [Interacting]
     Indication: COUGH
  3. AVELOX [Interacting]
     Indication: BRONCHITIS
  4. AVELOX [Interacting]
     Indication: PULMONARY CONGESTION

REACTIONS (2)
  - ANAPHYLACTIC REACTION [None]
  - DRUG INTERACTION [None]
